FAERS Safety Report 23831949 (Version 1)
Quarter: 2024Q2

REPORT INFORMATION
  Report Type: Spontaneous
  Country: US (occurrence: None)
  Receive Date: 20240507
  Receipt Date: 20240507
  Transmission Date: 20240716
  Serious: Yes (Other)
  Sender: FDA-Public Use
  Company Number: None

PATIENT
  Age: 46 Year
  Sex: Female
  Weight: 54 kg

DRUGS (1)
  1. ESTRADIOL [Suspect]
     Active Substance: ESTRADIOL
     Indication: Menopause
     Dosage: FREQUENCY : AT BEDTIME;?
     Route: 061

REACTIONS (4)
  - Mental disorder [None]
  - Suicidal ideation [None]
  - Social avoidant behaviour [None]
  - Therapy interrupted [None]

NARRATIVE: CASE EVENT DATE: 20231220
